FAERS Safety Report 21238235 (Version 1)
Quarter: 2022Q3

REPORT INFORMATION
  Report Type: Spontaneous
  Country: US (occurrence: US)
  Receive Date: 20220822
  Receipt Date: 20220822
  Transmission Date: 20221026
  Serious: No
  Sender: FDA-Public Use
  Company Number: US-BRISTOL-MYERS SQUIBB COMPANY-2022-091871

PATIENT
  Age: 86 Year
  Sex: Female

DRUGS (1)
  1. REVLIMID [Suspect]
     Active Substance: LENALIDOMIDE
     Indication: Plasma cell myeloma
     Dosage: THERAPY GIVEN FOR 21 DAYS OFF 7 DAYS
     Route: 048

REACTIONS (7)
  - Joint stiffness [Recovered/Resolved]
  - Arthralgia [Unknown]
  - Blood potassium decreased [Unknown]
  - Chest discomfort [Unknown]
  - Chest pain [Unknown]
  - Osteitis [Unknown]
  - Intentional product use issue [Unknown]

NARRATIVE: CASE EVENT DATE: 20220101
